FAERS Safety Report 5011768-8 (Version None)
Quarter: 2006Q2

REPORT INFORMATION
  Report Type: 
  Country: None (occurrence: None)
  Receive Date: 20060526
  Receipt Date: 20060516
  Transmission Date: 20061013
  Serious: Yes (Hospitalization)
  Sender: FDA-Public Use
  Company Number: FR-JNJFOC-20060505377

PATIENT
  Age: 60 Year
  Sex: Female

DRUGS (1)
  1. CONTRAMAL [Suspect]
     Indication: SHOULDER PAIN
     Route: 048

REACTIONS (4)
  - ABASIA [None]
  - BLOOD PRESSURE INCREASED [None]
  - MALAISE [None]
  - SOMNOLENCE [None]
